FAERS Safety Report 5832961-8 (Version None)
Quarter: 2008Q3

REPORT INFORMATION
  Report Type: 
  Country: None (occurrence: None)
  Receive Date: 20080804
  Receipt Date: 20080724
  Transmission Date: 20090109
  Serious: Yes (Hospitalization)
  Sender: FDA-Public Use
  Company Number: GB-AMGEN-UK296739

PATIENT
  Sex: Female
  Weight: 54 kg

DRUGS (3)
  1. KINERET [Suspect]
     Indication: RHEUMATOID ARTHRITIS
     Dates: start: 20070418, end: 20071120
  2. PREDNISOLONE [Concomitant]
  3. FOLIC ACID [Concomitant]

REACTIONS (1)
  - ABORTION INDUCED [None]
